FAERS Safety Report 6225645-8 (Version None)
Quarter: 2009Q2

REPORT INFORMATION
  Report Type: 
  Country: None (occurrence: None)
  Receive Date: 20090612
  Receipt Date: 20090427
  Transmission Date: 20091009
  Serious: Yes (Hospitalization)
  Sender: FDA-Public Use
  Company Number: US-ABBOTT-09P-163-0570629-00

PATIENT
  Sex: Female
  Weight: 56.75 kg

DRUGS (2)
  1. HUMIRA [Suspect]
     Indication: CROHN'S DISEASE
     Route: 058
     Dates: start: 20080406
  2. HUMIRA [Suspect]
     Route: 058
     Dates: start: 20050101

REACTIONS (6)
  - BURNING SENSATION [None]
  - CROHN'S DISEASE [None]
  - DIARRHOEA [None]
  - FATIGUE [None]
  - INJECTION SITE PAIN [None]
  - PAIN [None]
